FAERS Safety Report 6602725-6 (Version None)
Quarter: 2010Q1

REPORT INFORMATION
  Report Type: 
  Country: None (occurrence: None)
  Receive Date: 20100218
  Receipt Date: 20100205
  Transmission Date: 20100710
  Serious: Yes (Other)
  Sender: FDA-Public Use
  Company Number: 006662

PATIENT
  Age: 22 Year
  Sex: Male

DRUGS (2)
  1. OMEPRAZOLE [Suspect]
     Indication: DYSPEPSIA
     Dosage: (ONCE DAILY)
  2. ZAPONEX (ZAPONEX) (NOT SPECIFIED) [Suspect]
     Dosage: (350 MG ORAL)
     Route: 048

REACTIONS (2)
  - DRUG INTERACTION [None]
  - DYSPNOEA [None]
